FAERS Safety Report 10011666 (Version 1)
Quarter: 2014Q1

REPORT INFORMATION
  Report Type: Spontaneous
  Country: US (occurrence: None)
  Receive Date: 20140313
  Receipt Date: 20140313
  Transmission Date: 20141002
  Serious: Yes (Disabling)
  Sender: FDA-Public Use
  Company Number: None

PATIENT
  Age: 52 Year
  Sex: Female

DRUGS (1)
  1. SILDENAFIL [Suspect]
     Indication: COR PULMONALE CHRONIC
     Route: 048
     Dates: start: 20131026, end: 20140310

REACTIONS (1)
  - Blindness [None]
